FAERS Safety Report 4512466-7 (Version None)
Quarter: 2004Q4

REPORT INFORMATION
  Report Type: 
  Country: None (occurrence: None)
  Receive Date: 20041124
  Receipt Date: 20041105
  Transmission Date: 20050328
  Serious: Yes (Hospitalization)
  Sender: FDA-Public Use
  Company Number: USA040977155

PATIENT
  Age: 37 Year
  Sex: Female
  Weight: 107 kg

DRUGS (2)
  1. PROZAC [Suspect]
     Dates: start: 19970101
  2. FLUOXETINE [Concomitant]

REACTIONS (2)
  - GASTRIC BYPASS [None]
  - OBESITY [None]
